FAERS Safety Report 20577552 (Version 3)
Quarter: 2022Q3

REPORT INFORMATION
  Report Type: Spontaneous
  Country: CN (occurrence: None)
  Receive Date: 20220310
  Receipt Date: 20220726
  Transmission Date: 20221027
  Serious: Yes (Other)
  Sender: FDA-Public Use
  Company Number: CN-ROCHE-3042355

PATIENT
  Age: 64 Year
  Sex: Female

DRUGS (35)
  1. MABTHERA [Suspect]
     Active Substance: RITUXIMAB
     Indication: Mantle cell lymphoma
     Dosage: RCHOP FOR 8 CYCLES?RITUXIMAB FOR 4 CYCLES
     Route: 065
  2. GAZYVA [Suspect]
     Active Substance: OBINUTUZUMAB
     Indication: Mantle cell lymphoma
     Dosage: FORM OF ADMIN. TEXT: INJECTION
     Route: 042
     Dates: start: 20220117
  3. GAZYVA [Suspect]
     Active Substance: OBINUTUZUMAB
     Dosage: FORM OF ADMIN. TEXT: INJECTION
     Route: 042
     Dates: start: 20220222
  4. GAZYVA [Suspect]
     Active Substance: OBINUTUZUMAB
     Route: 042
     Dates: start: 20220405
  5. GAZYVA [Suspect]
     Active Substance: OBINUTUZUMAB
     Route: 042
     Dates: start: 20220503
  6. GAZYVA [Suspect]
     Active Substance: OBINUTUZUMAB
     Route: 042
     Dates: start: 20220530
  7. VENETOCLAX [Suspect]
     Active Substance: VENETOCLAX
     Indication: Mantle cell lymphoma
     Dosage: DOSAGE TEXT:  ZANUBRUTINIB+VENETOCLAX
     Route: 048
     Dates: start: 202010
  8. VENETOCLAX [Suspect]
     Active Substance: VENETOCLAX
     Route: 048
     Dates: start: 202112
  9. ZANUBRUTINIB [Suspect]
     Active Substance: ZANUBRUTINIB
     Indication: Mantle cell lymphoma
     Dosage: ZANUBRUTINIB + LENALIDOMIDE?ZANUBRUTINIB + VENETOCLAX
     Route: 048
     Dates: start: 202010
  10. ZANUBRUTINIB [Suspect]
     Active Substance: ZANUBRUTINIB
     Dosage: ZANUBRUTINIB + VENETOCLAX + PALBOCICLIB
     Route: 048
     Dates: start: 202112
  11. ZANUBRUTINIB [Suspect]
     Active Substance: ZANUBRUTINIB
     Route: 048
     Dates: start: 20220326
  12. PALBOCICLIB [Suspect]
     Active Substance: PALBOCICLIB
     Indication: Mantle cell lymphoma
     Dosage: ZANUBRUTINIB + VENETOCLAX + PALBOCICLIB
     Route: 048
     Dates: start: 202112
  13. CYCLOPHOSPHAMIDE [Concomitant]
     Active Substance: CYCLOPHOSPHAMIDE
     Indication: Mantle cell lymphoma
     Dosage: DOSAGE TEXT: RCHOP FOR 8 CYCLES
  14. DOXORUBICIN [Concomitant]
     Active Substance: DOXORUBICIN
     Indication: Mantle cell lymphoma
     Dosage: DOSAGE TEXT: RCHOP FOR 8 CYCLES
  15. VINCRISTINE [Concomitant]
     Active Substance: VINCRISTINE
     Indication: Mantle cell lymphoma
     Dosage: DOSAGE TEXT: RCHOP FOR 8 CYCLES
  16. PREDNISONE [Concomitant]
     Active Substance: PREDNISONE
     Indication: Mantle cell lymphoma
     Dosage: DOSAGE TEXT: RCHOP FOR 8 CYCLES
  17. ORELABRUTINIB [Concomitant]
     Active Substance: ORELABRUTINIB
     Indication: Mantle cell lymphoma
  18. LENALIDOMIDE [Concomitant]
     Active Substance: LENALIDOMIDE
     Indication: Mantle cell lymphoma
     Dosage: ZANUBRUTINIB + LENALIDOMIDE
     Route: 048
     Dates: start: 202010
  19. LENALIDOMIDE [Concomitant]
     Active Substance: LENALIDOMIDE
     Dosage: ZANUBRUTINIB + LENALIDOMIDE
     Route: 048
     Dates: start: 20220326
  20. SELINEXOR [Concomitant]
     Active Substance: SELINEXOR
     Indication: Mantle cell lymphoma
     Route: 048
     Dates: start: 20220117
  21. SELINEXOR [Concomitant]
     Active Substance: SELINEXOR
     Dates: start: 20220222
  22. SELINEXOR [Concomitant]
     Active Substance: SELINEXOR
     Dosage: PER WEEK
     Route: 048
     Dates: start: 20220322
  23. SELINEXOR [Concomitant]
     Active Substance: SELINEXOR
     Dosage: XPO1+BTK+ RD
     Dates: start: 20220326
  24. SELINEXOR [Concomitant]
     Active Substance: SELINEXOR
     Dosage: PER WEEK
     Route: 048
     Dates: start: 20220326
  25. SELINEXOR [Concomitant]
     Active Substance: SELINEXOR
     Dosage: PER WEEK
     Route: 048
     Dates: start: 20220503
  26. BENDAMUSTINE [Concomitant]
     Active Substance: BENDAMUSTINE
     Indication: Mantle cell lymphoma
     Dosage: DOSAGE TEXT: 150 MG DAY1, 125 MG DAY2, 28-DAY CYCLE.
     Dates: start: 20220222
  27. BENDAMUSTINE [Concomitant]
     Active Substance: BENDAMUSTINE
     Dosage: 150 MG DAY1, 125 MG DAY2
     Dates: start: 20220405
  28. BENDAMUSTINE [Concomitant]
     Active Substance: BENDAMUSTINE
     Dosage: 150 MG DAY1, 125 MG DAY2
     Dates: start: 20220503
  29. VALSARTAN [Concomitant]
     Active Substance: VALSARTAN
     Indication: Hypertension
     Route: 048
  30. LEVAMLODIPINE BESYLATE [Concomitant]
     Active Substance: LEVAMLODIPINE BESYLATE
     Indication: Hypertension
     Route: 048
  31. LANTUS [Concomitant]
     Active Substance: INSULIN GLARGINE
     Indication: Diabetes mellitus
  32. INSULIN GLARGINE [Concomitant]
     Active Substance: INSULIN GLARGINE
     Indication: Diabetes mellitus
  33. DEXAMETHASONE [Concomitant]
     Active Substance: DEXAMETHASONE
     Indication: Mantle cell lymphoma
     Dosage: PER WEEK
     Route: 048
     Dates: start: 20220322
  34. DEXAMETHASONE [Concomitant]
     Active Substance: DEXAMETHASONE
     Dosage: XPO1+BTK+ RD
     Dates: start: 20220326
  35. BORTEZOMIB [Concomitant]
     Active Substance: BORTEZOMIB
     Indication: Mantle cell lymphoma
     Dosage: DAY1, 4, 8, 11
     Dates: start: 20220503

REACTIONS (5)
  - Myelosuppression [Unknown]
  - Peripheral swelling [Recovering/Resolving]
  - Platelet count decreased [Unknown]
  - Off label use [Unknown]
  - Rash [Recovering/Resolving]
